FAERS Safety Report 22704646 (Version 3)
Quarter: 2023Q4

REPORT INFORMATION
  Report Type: Spontaneous
  Country: KR (occurrence: KR)
  Receive Date: 20230714
  Receipt Date: 20231020
  Transmission Date: 20240110
  Serious: Yes (Death)
  Sender: FDA-Public Use
  Company Number: KR-PHARMAESSENTIA CORPORATION-KR-2023-PEC-001700

PATIENT
  Age: 83 Year
  Sex: Female

DRUGS (1)
  1. BESREMI [Suspect]
     Active Substance: ROPEGINTERFERON ALFA-2B-NJFT
     Indication: Polycythaemia vera
     Dosage: 250 MCG
     Route: 058
     Dates: start: 20230524, end: 20230607

REACTIONS (1)
  - Death [Fatal]
